FAERS Safety Report 5130875-2 (Version None)
Quarter: 2006Q4

REPORT INFORMATION
  Report Type: 
  Country: None (occurrence: None)
  Receive Date: 20061013
  Receipt Date: 20061004
  Transmission Date: 20070319
  Serious: No
  Sender: FDA-Public Use
  Company Number: 2006BI012425

PATIENT
  Sex: Male

DRUGS (2)
  1. AVONEX [Suspect]
     Indication: MULTIPLE SCLEROSIS
     Dosage: 30 UG; QW; IM
     Route: 030
     Dates: start: 19970206, end: 19980522
  2. MEDICATION (NOS) [Concomitant]

REACTIONS (4)
  - BIPOLAR DISORDER [None]
  - PRURITUS [None]
  - PSYCHOTIC DISORDER [None]
  - RASH [None]
